FAERS Safety Report 8296033-8 (Version None)
Quarter: 2012Q2

REPORT INFORMATION
  Report Type: 
  Country: None (occurrence: None)
  Receive Date: 20120418
  Receipt Date: 20120412
  Transmission Date: 20120825
  Serious: Yes (Hospitalization)
  Sender: FDA-Public Use
  Company Number: US-GLAXOSMITHKLINE-A0794857A

PATIENT
  Age: 63 Year
  Sex: Female
  Weight: 81.4 kg

DRUGS (8)
  1. LIPITOR [Concomitant]
  2. NORVASC [Concomitant]
  3. AVANDIA [Suspect]
     Indication: DIABETES MELLITUS
     Dosage: 8MG PER DAY
     Route: 048
     Dates: start: 20000915, end: 20070607
  4. ELAVIL [Concomitant]
  5. DYAZIDE [Concomitant]
  6. PRINIVIL [Concomitant]
  7. GLIPIZIDE [Concomitant]
  8. PAXIL [Concomitant]

REACTIONS (3)
  - ARTERIOSPASM CORONARY [None]
  - MYOCARDIAL INFARCTION [None]
  - CARDIAC FAILURE CONGESTIVE [None]
